FAERS Safety Report 7728932-7 (Version None)
Quarter: 2011Q3

REPORT INFORMATION
  Report Type: 
  Country: None (occurrence: None)
  Receive Date: 20110831
  Receipt Date: 20110831
  Transmission Date: 20111222
  Serious: Yes (Other)
  Sender: FDA-Public Use
  Company Number: None

PATIENT
  Age: 81 Year
  Sex: Male
  Weight: 73.9363 kg

DRUGS (1)
  1. ANDRODERM [Suspect]
     Indication: BLOOD TESTOSTERONE DECREASED
     Dosage: 1 PATCH PER DAY DAILY
     Dates: start: 20101201

REACTIONS (1)
  - APPLICATION SITE BURN [None]
